FAERS Safety Report 9004047 (Version 2)
Quarter: 2013Q1

REPORT INFORMATION
  Report Type: Spontaneous
  Country: KR (occurrence: KR)
  Receive Date: 20130109
  Receipt Date: 20130215
  Transmission Date: 20140127
  Serious: Yes (Death)
  Sender: FDA-Public Use
  Company Number: KR-009507513-1301KOR002473

PATIENT
  Age: 56 Year
  Sex: Female

DRUGS (1)
  1. NOXAFIL [Suspect]
     Indication: ANTIFUNGAL TREATMENT
     Dosage: 800 MG, QD
     Route: 048

REACTIONS (1)
  - Acute lymphocytic leukaemia [Fatal]
